FAERS Safety Report 9866701 (Version 2)
Quarter: 2014Q1

REPORT INFORMATION
  Report Type: Spontaneous
  Country: US (occurrence: US)
  Receive Date: 20140204
  Receipt Date: 20140218
  Transmission Date: 20141002
  Serious: No
  Sender: FDA-Public Use
  Company Number: US-BIOGENIDEC-2014BI008747

PATIENT
  Age: 47 Year
  Sex: Female

DRUGS (14)
  1. TECFIDERA [Suspect]
     Indication: MULTIPLE SCLEROSIS
     Route: 048
     Dates: start: 201401
  2. TECFIDERA [Suspect]
     Indication: MULTIPLE SCLEROSIS
     Route: 048
     Dates: start: 20140115
  3. TECFIDERA [Suspect]
     Indication: MULTIPLE SCLEROSIS
     Route: 048
     Dates: start: 201401
  4. HYDROCHLOROTHIAZIDE [Concomitant]
  5. SEROQUEL [Concomitant]
  6. LEVOTHYROXINE [Concomitant]
  7. LEXAPRO [Concomitant]
  8. CLONAZEPAM [Concomitant]
  9. NUVIGIL [Concomitant]
  10. ESCITALOPRAM [Concomitant]
  11. GABAPENTIN [Concomitant]
  12. FAMCYCLOVIR [Concomitant]
  13. ZALEPLON [Concomitant]
  14. IBUPROFEN [Concomitant]

REACTIONS (9)
  - Dyspnoea [Not Recovered/Not Resolved]
  - Paraesthesia [Not Recovered/Not Resolved]
  - Hyperaesthesia [Not Recovered/Not Resolved]
  - Erythema [Unknown]
  - Pruritus [Not Recovered/Not Resolved]
  - Abdominal pain [Not Recovered/Not Resolved]
  - Nausea [Not Recovered/Not Resolved]
  - Generalised erythema [Not Recovered/Not Resolved]
  - Feeling hot [Not Recovered/Not Resolved]
